FAERS Safety Report 15126763 (Version 1)
Quarter: 2018Q3

REPORT INFORMATION
  Report Type: Spontaneous
  Country: US (occurrence: US)
  Receive Date: 20180710
  Receipt Date: 20180710
  Transmission Date: 20181010
  Serious: No
  Sender: FDA-Public Use
  Company Number: US-PERRIGO-17US024358

PATIENT
  Sex: Male

DRUGS (1)
  1. MICONAZOLE 1 [Suspect]
     Active Substance: MICONAZOLE NITRATE
     Indication: ACCIDENTAL EXPOSURE TO PRODUCT
     Dosage: UNKNOWN, SINGLE
     Route: 061
     Dates: start: 201706, end: 201706

REACTIONS (2)
  - Accidental exposure to product [Recovered/Resolved]
  - Genital burning sensation [Unknown]

NARRATIVE: CASE EVENT DATE: 201706
